FAERS Safety Report 7551324-0 (Version None)
Quarter: 2011Q2

REPORT INFORMATION
  Report Type: 
  Country: None (occurrence: None)
  Receive Date: 20110616
  Receipt Date: 20110613
  Transmission Date: 20111010
  Serious: Yes (Other)
  Sender: FDA-Public Use
  Company Number: JP-PFIZER INC-2011129004

PATIENT

DRUGS (2)
  1. CEFACLOR [Concomitant]
     Dosage: UNK
     Route: 064
     Dates: start: 20110611, end: 20110611
  2. UNASYN [Suspect]
     Dosage: UNK
     Route: 064
     Dates: start: 20110611, end: 20110611

REACTIONS (2)
  - FOETAL HEART RATE DECREASED [None]
  - DRUG EXPOSURE DURING PREGNANCY [None]
